FAERS Safety Report 12728780 (Version 3)
Quarter: 2016Q3

REPORT INFORMATION
  Report Type: Spontaneous
  Country: US (occurrence: US)
  Receive Date: 20160909
  Receipt Date: 20160930
  Transmission Date: 20161109
  Serious: No
  Sender: FDA-Public Use
  Company Number: US-PFIZER INC-2016423140

PATIENT
  Age: 75 Year
  Sex: Female

DRUGS (3)
  1. LATANOPROST. [Suspect]
     Active Substance: LATANOPROST
     Dosage: 1 DF, 1X/DAY (125 MCG/2.5 ML, ONCE AT BED TIME) (ONE DROP IN BOTH EYES)
     Dates: start: 20150619
  2. LATANOPROST. [Suspect]
     Active Substance: LATANOPROST
     Dosage: UNK
  3. LATANOPROST. [Suspect]
     Active Substance: LATANOPROST
     Dosage: UNK

REACTIONS (5)
  - Eye irritation [Recovering/Resolving]
  - Meibomianitis [Unknown]
  - Seasonal allergy [Unknown]
  - Ocular hyperaemia [Not Recovered/Not Resolved]
  - Dry eye [Unknown]
